FAERS Safety Report 26204141 (Version 1)
Quarter: 2025Q4

REPORT INFORMATION
  Report Type: Report from Study
  Country: US (occurrence: US)
  Receive Date: 20251226
  Receipt Date: 20251226
  Transmission Date: 20260117
  Serious: Yes (Hospitalization)
  Sender: TAKEDA
  Company Number: US-TAKEDA-2025TUS117677

PATIENT
  Age: 71 Year
  Sex: Female

DRUGS (1)
  1. MARIBAVIR [Suspect]
     Active Substance: MARIBAVIR
     Indication: Cytomegalovirus infection
     Dosage: 400 MILLIGRAM, BID
     Dates: start: 20251203

REACTIONS (2)
  - Gastrointestinal infection [Recovering/Resolving]
  - Large intestine polyp [Unknown]

NARRATIVE: CASE EVENT DATE: 20251210
